FAERS Safety Report 9447302 (Version 1)
Quarter: 2013Q3

REPORT INFORMATION
  Report Type: Spontaneous
  Country: US (occurrence: US)
  Receive Date: 20130808
  Receipt Date: 20130808
  Transmission Date: 20140515
  Serious: Yes (Other)
  Sender: FDA-Public Use
  Company Number: US-BIOGENIDEC-2013BI070777

PATIENT
  Age: 30 Year
  Sex: Female

DRUGS (1)
  1. TECFIDERA [Suspect]
     Indication: PRODUCT USED FOR UNKNOWN INDICATION
     Route: 048
     Dates: start: 20130713

REACTIONS (4)
  - Convulsion [Unknown]
  - Diarrhoea [Unknown]
  - Nausea [Unknown]
  - Hemiparesis [Unknown]
